FAERS Safety Report 10066492 (Version 1)
Quarter: 2014Q2

REPORT INFORMATION
  Report Type: Spontaneous
  Country: US (occurrence: None)
  Receive Date: 20140401
  Receipt Date: 20140401
  Transmission Date: 20141212
  Serious: Yes (Hospitalization)
  Sender: FDA-Public Use
  Company Number: PHEH2013US006637

PATIENT
  Age: 65 Year
  Sex: Female

DRUGS (4)
  1. EXELON PATCH [Suspect]
     Indication: DEMENTIA
     Route: 062
  2. DEPAKOTE (VALPROATE SEMISODIUM) [Concomitant]
  3. PLAVIX (CLOPIDOGREL BISULFATE) (CLOPIDOGREL BISULFATE) [Concomitant]
  4. TRILEPTAL (OXCARBAZEPINE) [Concomitant]

REACTIONS (1)
  - Dizziness [None]
